FAERS Safety Report 11931456 (Version 1)
Quarter: 2016Q1

REPORT INFORMATION
  Report Type: Spontaneous
  Country: US (occurrence: US)
  Receive Date: 20160120
  Receipt Date: 20160120
  Transmission Date: 20160526
  Serious: No
  Sender: FDA-Public Use
  Company Number: US-INCYTE CORPORATION-2015IN005709

PATIENT
  Sex: Male

DRUGS (12)
  1. ASPIRIN. [Concomitant]
     Active Substance: ASPIRIN
  2. FLEXERIL [Concomitant]
     Active Substance: CYCLOBENZAPRINE HYDROCHLORIDE
     Dosage: PRN
  3. TYLENOL [Concomitant]
     Active Substance: ACETAMINOPHEN
     Dosage: PRN
  4. FENOFIBRATE. [Concomitant]
     Active Substance: FENOFIBRATE
  5. NORCO [Concomitant]
     Active Substance: ACETAMINOPHEN\HYDROCODONE BITARTRATE
     Dosage: PRN
  6. ZOCOR [Concomitant]
     Active Substance: SIMVASTATIN
  7. ALLEGRA [Concomitant]
     Active Substance: FEXOFENADINE HYDROCHLORIDE
  8. MOBIC [Concomitant]
     Active Substance: MELOXICAM
  9. COZAAR [Concomitant]
     Active Substance: LOSARTAN POTASSIUM
  10. PRILOSEC [Concomitant]
     Active Substance: OMEPRAZOLE MAGNESIUM
  11. VITAMIN D                          /00107901/ [Concomitant]
     Active Substance: ERGOCALCIFEROL
  12. JAKAFI [Suspect]
     Active Substance: RUXOLITINIB
     Indication: MYELOFIBROSIS
     Dosage: 20 MG, BID
     Route: 048
     Dates: start: 20151029

REACTIONS (5)
  - Dysgeusia [Unknown]
  - Nausea [Unknown]
  - Flatulence [Unknown]
  - Fatigue [Unknown]
  - Diarrhoea [Unknown]
